FAERS Safety Report 6913647-5 (Version None)
Quarter: 2010Q3

REPORT INFORMATION
  Report Type: 
  Country: None (occurrence: None)
  Receive Date: 20100809
  Receipt Date: 20100728
  Transmission Date: 20110219
  Serious: Yes (Hospitalization)
  Sender: FDA-Public Use
  Company Number: JP-SANOFI-AVENTIS-A01200806102

PATIENT
  Age: 80 Year
  Sex: Male

DRUGS (4)
  1. CLOPIDOGREL BISULFATE [Suspect]
     Route: 048
  2. CLOPIDOGREL BISULFATE [Suspect]
     Route: 048
  3. ASPIRIN [Concomitant]
     Route: 065
  4. ASPIRIN [Concomitant]
     Route: 065

REACTIONS (4)
  - BACK PAIN [None]
  - CONVULSION [None]
  - EXTRADURAL HAEMATOMA [None]
  - PARAPLEGIA [None]
